FAERS Safety Report 8506110-1 (Version None)
Quarter: 2012Q3

REPORT INFORMATION
  Report Type: 
  Country: None (occurrence: None)
  Receive Date: 20120712
  Receipt Date: 20120628
  Transmission Date: 20120928
  Serious: Yes (Other)
  Sender: FDA-Public Use
  Company Number: US-ROCHE-1056705

PATIENT
  Sex: Female
  Weight: 31.78 kg

DRUGS (2)
  1. ALBUTEROL [Concomitant]
  2. ACCUTANE [Suspect]
     Indication: SKIN DISORDER
     Dates: start: 19870101, end: 19871201

REACTIONS (8)
  - MENTAL DISORDER [None]
  - CROHN'S DISEASE [None]
  - REPRODUCTIVE TRACT DISORDER [None]
  - INFLAMMATORY BOWEL DISEASE [None]
  - BIPOLAR DISORDER [None]
  - COLITIS ULCERATIVE [None]
  - DEPRESSION [None]
  - IRRITABLE BOWEL SYNDROME [None]
